FAERS Safety Report 9205063 (Version 1)
Quarter: 2013Q2

REPORT INFORMATION
  Report Type: Spontaneous
  Country: US (occurrence: None)
  Receive Date: 20130401
  Receipt Date: 20130401
  Transmission Date: 20140414
  Serious: Yes (Disabling)
  Sender: FDA-Public Use
  Company Number: None

PATIENT
  Age: 34 Year
  Sex: Male
  Weight: 111.13 kg

DRUGS (1)
  1. LARIAM [Suspect]
     Indication: MALARIA PROPHYLAXIS
     Route: 048
     Dates: start: 20030515, end: 20030907

REACTIONS (8)
  - Anxiety [None]
  - Depression [None]
  - Exaggerated startle response [None]
  - Nightmare [None]
  - Crying [None]
  - Post-traumatic stress disorder [None]
  - Drug ineffective [None]
  - Brain injury [None]
